FAERS Safety Report 12054935 (Version 1)
Quarter: 2016Q1

REPORT INFORMATION
  Report Type: Spontaneous
  Country: US (occurrence: US)
  Receive Date: 20160209
  Receipt Date: 20160209
  Transmission Date: 20160526
  Serious: No
  Sender: FDA-Public Use
  Company Number: US-ABBVIE-15P-163-1460430-00

PATIENT
  Sex: Female

DRUGS (2)
  1. STEROIDS [Suspect]
     Active Substance: UNSPECIFIED INGREDIENT
     Indication: PRODUCT USED FOR UNKNOWN INDICATION
     Dosage: TAPERING DOSE
     Route: 065
  2. HUMIRA [Suspect]
     Active Substance: ADALIMUMAB
     Indication: IRRITABLE BOWEL SYNDROME
     Route: 058

REACTIONS (10)
  - Gait disturbance [Unknown]
  - Irritable bowel syndrome [Unknown]
  - Fatigue [Unknown]
  - Cushingoid [Unknown]
  - Arthralgia [Unknown]
  - Hunger [Unknown]
  - Night sweats [Unknown]
  - Mania [Unknown]
  - Asthenia [Unknown]
  - Insomnia [Unknown]
